FAERS Safety Report 6035592-2 (Version None)
Quarter: 2009Q1

REPORT INFORMATION
  Report Type: 
  Country: None (occurrence: None)
  Receive Date: 20090113
  Receipt Date: 20090108
  Transmission Date: 20090719
  Serious: Yes (Other)
  Sender: FDA-Public Use
  Company Number: US-BAYER-200910087BCC

PATIENT
  Age: 20 Year
  Sex: Female

DRUGS (5)
  1. MIDOL [Suspect]
     Indication: DYSMENORRHOEA
     Route: 048
     Dates: start: 20090107
  2. UNKNOWN MEDICATION [Suspect]
     Indication: DRUG USE FOR UNKNOWN INDICATION
  3. ABILIFY [Concomitant]
  4. LAMICTAL [Concomitant]
  5. SEROQUEL [Concomitant]

REACTIONS (2)
  - HALLUCINATION, AUDITORY [None]
  - SUICIDAL IDEATION [None]
